FAERS Safety Report 5390858-4 (Version None)
Quarter: 2007Q3

REPORT INFORMATION
  Report Type: 
  Country: None (occurrence: None)
  Receive Date: 20070716
  Receipt Date: 20070702
  Transmission Date: 20080115
  Serious: Yes (Hospitalization)
  Sender: FDA-Public Use
  Company Number: GXKR2007GB05696

PATIENT
  Age: 16 Year
  Sex: Female

DRUGS (1)
  1. TEMAZEPAM [Suspect]
     Indication: PHOBIA
     Dosage: SEE IMAGE
     Route: 048

REACTIONS (3)
  - FALL [None]
  - OVERDOSE [None]
  - SPINAL DISORDER [None]
